FAERS Safety Report 8051085-5 (Version None)
Quarter: 2012Q1

REPORT INFORMATION
  Report Type: 
  Country: None (occurrence: None)
  Receive Date: 20120117
  Receipt Date: 20120109
  Transmission Date: 20120608
  Serious: Yes (Hospitalization, Disabling, Other)
  Sender: FDA-Public Use
  Company Number: PHHY2011DE102438

PATIENT
  Age: 55 Year
  Sex: Female
  Weight: 48 kg

DRUGS (7)
  1. CITALOPRAM HYDROBROMIDE [Concomitant]
     Indication: DEPRESSION
     Dosage: 20 MG, QD
     Route: 048
     Dates: start: 20110609
  2. AMLODIPINE [Concomitant]
     Indication: HYPERTENSION
  3. PANTOPRAZOLE [Concomitant]
     Indication: GASTRIC DISORDER
     Dosage: 40 MG, QD
  4. AEQUAMEN [Concomitant]
     Indication: VERTIGO
  5. BISOPROLOL FUMARATE [Concomitant]
     Indication: HYPERTENSION
     Dosage: 5 MG, QD
  6. GILENYA [Suspect]
     Indication: MULTIPLE SCLEROSIS
     Dosage: 0.5 MG, QD
     Route: 048
     Dates: start: 20110609
  7. DELIX [Concomitant]
     Indication: HYPERTENSION
     Dosage: 5 MG, QD

REACTIONS (24)
  - CEREBRAL HAEMORRHAGE [None]
  - DISTURBANCE IN ATTENTION [None]
  - GAIT DISTURBANCE [None]
  - MOTOR DYSFUNCTION [None]
  - APHASIA [None]
  - ELECTROCARDIOGRAM T WAVE ABNORMAL [None]
  - BALANCE DISORDER [None]
  - ATAXIA [None]
  - HYPERREFLEXIA [None]
  - FATIGUE [None]
  - PARAESTHESIA [None]
  - MEMORY IMPAIRMENT [None]
  - STRESS URINARY INCONTINENCE [None]
  - SPEECH DISORDER [None]
  - DYSPHAGIA [None]
  - DISORIENTATION [None]
  - CONVULSION [None]
  - PERSONALITY CHANGE [None]
  - HEADACHE [None]
  - RETROGRADE AMNESIA [None]
  - SENSATION OF PRESSURE [None]
  - COGNITIVE DISORDER [None]
  - POSITIVE ROMBERGISM [None]
  - HYPOAESTHESIA [None]
